FAERS Safety Report 23236343 (Version 4)
Quarter: 2024Q1

REPORT INFORMATION
  Report Type: Spontaneous
  Country: US (occurrence: US)
  Receive Date: 20231128
  Receipt Date: 20240201
  Transmission Date: 20240410
  Serious: Yes (Hospitalization)
  Sender: FDA-Public Use
  Company Number: US-002147023-NVSC2023US247710

PATIENT
  Age: 3 Year
  Sex: Male

DRUGS (24)
  1. CANAKINUMAB [Suspect]
     Active Substance: CANAKINUMAB
     Indication: Autoinflammatory disease
     Dosage: 10 MG/KG, Q2W
     Route: 042
     Dates: start: 20230517
  2. ANAKINRA [Concomitant]
     Active Substance: ANAKINRA
     Indication: Product used for unknown indication
     Dosage: UNK
     Route: 065
  3. ANAKINRA [Concomitant]
     Active Substance: ANAKINRA
     Dosage: 80 MG (INCREASE TO 100MG QD)
     Route: 065
     Dates: start: 20230216
  4. ANAKINRA [Concomitant]
     Active Substance: ANAKINRA
     Dosage: 100 MG (Q6) (REQUIRING NC 1-2L)
     Route: 065
     Dates: start: 20231018, end: 20231021
  5. XELJANZ [Concomitant]
     Active Substance: TOFACITINIB CITRATE
     Indication: Product used for unknown indication
     Dosage: UNK
     Route: 065
  6. METHYLPREDNISOLONE [Concomitant]
     Active Substance: METHYLPREDNISOLONE
     Indication: Product used for unknown indication
     Dosage: UNK
     Route: 065
  7. METHYLPREDNISOLONE [Concomitant]
     Active Substance: METHYLPREDNISOLONE
     Dosage: 2 MG/KG, BID
     Route: 042
     Dates: start: 202310
  8. METHYLPREDNISOLONE [Concomitant]
     Active Substance: METHYLPREDNISOLONE
     Dosage: 2 MG/KG, BID
     Route: 042
     Dates: start: 20231021
  9. METHYLPREDNISOLONE [Concomitant]
     Active Substance: METHYLPREDNISOLONE
     Dosage: 10 MG/KG, BID
     Route: 042
     Dates: start: 20231030
  10. METHYLPREDNISOLONE [Concomitant]
     Active Substance: METHYLPREDNISOLONE
     Dosage: 30 MG/KG, BID
     Route: 042
     Dates: start: 20231031
  11. METHYLPREDNISOLONE [Concomitant]
     Active Substance: METHYLPREDNISOLONE
     Dosage: 30 MG/KG, BID
     Route: 042
     Dates: start: 20231101
  12. METHYLPREDNISOLONE [Concomitant]
     Active Substance: METHYLPREDNISOLONE
     Dosage: 10 MG/KG
     Route: 042
     Dates: start: 202305
  13. METHYLPREDNISOLONE [Concomitant]
     Active Substance: METHYLPREDNISOLONE
     Dosage: 14 MG/KG
     Route: 042
     Dates: start: 20231124
  14. METHYLPREDNISOLONE [Concomitant]
     Active Substance: METHYLPREDNISOLONE
     Dosage: 14 MG/KG
     Route: 042
     Dates: start: 20231125
  15. METHYLPREDNISOLONE [Concomitant]
     Active Substance: METHYLPREDNISOLONE
     Dosage: 4 MG/KG
     Route: 065
     Dates: start: 20231129
  16. TOFACITINIB [Concomitant]
     Active Substance: TOFACITINIB
     Indication: Product used for unknown indication
     Dosage: UNK
     Route: 065
     Dates: start: 202306
  17. TOCILIZUMAB [Concomitant]
     Active Substance: TOCILIZUMAB
     Indication: Product used for unknown indication
     Dosage: UNK
     Route: 065
  18. IVIGLOB EX [Concomitant]
     Active Substance: HUMAN IMMUNOGLOBULIN G
     Indication: Product used for unknown indication
     Dosage: 2 MG/KG
     Route: 065
     Dates: start: 20231021
  19. BARICITINIB [Concomitant]
     Active Substance: BARICITINIB
     Indication: Product used for unknown indication
     Dosage: 2 MG, BID
     Route: 065
     Dates: start: 20231025
  20. CYCLOSPORINE [Concomitant]
     Active Substance: CYCLOSPORINE
     Indication: Product used for unknown indication
     Dosage: 1 MG/KG, BID
     Route: 065
     Dates: start: 20231029
  21. CYCLOSPORINE [Concomitant]
     Active Substance: CYCLOSPORINE
     Dosage: 1 MG/KG, BID
     Route: 065
     Dates: start: 20231029
  22. CYCLOSPORINE [Concomitant]
     Active Substance: CYCLOSPORINE
     Dosage: 2 MG/KG, BID
     Route: 065
     Dates: start: 20231101
  23. AZITHROMYCIN [Concomitant]
     Active Substance: AZITHROMYCIN
     Indication: Product used for unknown indication
     Dosage: UNK (X5D)
     Route: 065
     Dates: start: 20231121
  24. PENTAMIDINE [Concomitant]
     Active Substance: PENTAMIDINE
     Indication: Product used for unknown indication
     Dosage: UNK
     Route: 065
     Dates: end: 20231116

REACTIONS (5)
  - Haemophagocytic lymphohistiocytosis [Unknown]
  - Liver injury [Unknown]
  - Rash [Unknown]
  - Pyrexia [Unknown]
  - Respiratory disorder [Unknown]
